FAERS Safety Report 8446608-8 (Version None)
Quarter: 2012Q2

REPORT INFORMATION
  Report Type: 
  Country: None (occurrence: None)
  Receive Date: 20120619
  Receipt Date: 20120608
  Transmission Date: 20120825
  Serious: Yes (Other)
  Sender: FDA-Public Use
  Company Number: AR-AMGEN-ARGSP2012037094

PATIENT
  Age: 50 Year
  Sex: Female

DRUGS (6)
  1. ENBREL [Suspect]
     Indication: RHEUMATOID ARTHRITIS
     Dosage: 50 MG, WEEKLY
     Route: 058
     Dates: start: 20060203, end: 20070101
  2. VALSARTAN [Concomitant]
     Dosage: UNK
     Route: 048
  3. FOLIC ACID [Concomitant]
     Dosage: UNK
     Route: 048
  4. CALCIUM [Concomitant]
     Dosage: UNK
     Route: 048
  5. METHOTREXATE [Concomitant]
     Dosage: UNK
     Route: 048
  6. CLONAZEPAM [Concomitant]
     Dosage: UNK
     Route: 048

REACTIONS (5)
  - FOOT DEFORMITY [None]
  - MITRAL VALVE INCOMPETENCE [None]
  - TACHYCARDIA [None]
  - CATARACT [None]
  - NERVOUSNESS [None]
